FAERS Safety Report 24585334 (Version 1)
Quarter: 2024Q4

REPORT INFORMATION
  Report Type: Report from Study
  Country: US (occurrence: US)
  Receive Date: 20241106
  Receipt Date: 20241106
  Transmission Date: 20250115
  Serious: Yes (Death)
  Sender: BAYER HEALTHCARE PHARMACEUTICALS INC.
  Company Number: US-BAYER-2024A157563

PATIENT
  Age: 73 Year
  Sex: Female
  Weight: 50.794 kg

DRUGS (26)
  1. ADEMPAS [Suspect]
     Active Substance: RIOCIGUAT
     Indication: Pulmonary arterial hypertension
     Dosage: UNK
     Dates: start: 20230123
  2. ADEMPAS [Suspect]
     Active Substance: RIOCIGUAT
     Indication: Pulmonary arterial hypertension
     Dosage: 2 MG, TID
     Route: 048
  3. LIDOCAINE [Concomitant]
     Active Substance: LIDOCAINE
  4. CYMBALTA [Concomitant]
     Active Substance: DULOXETINE HYDROCHLORIDE
  5. HYDROCORTISONE [Concomitant]
     Active Substance: HYDROCORTISONE
  6. MELOXICAM [Concomitant]
     Active Substance: MELOXICAM
  7. OXYBUTYNIN CHLORIDE [Concomitant]
     Active Substance: OXYBUTYNIN CHLORIDE
  8. PREDNISOLONE ACETATE [Concomitant]
     Active Substance: PREDNISOLONE ACETATE
  9. RESTASIS [Concomitant]
     Active Substance: CYCLOSPORINE
  10. LYRICA [Concomitant]
     Active Substance: PREGABALIN
  11. ACETAMINOPHEN\HYDROCODONE [Concomitant]
     Active Substance: ACETAMINOPHEN\HYDROCODONE
  12. MYRBETRIQ [Concomitant]
     Active Substance: MIRABEGRON
  13. TOLTERODINE TARTRATE [Concomitant]
     Active Substance: TOLTERODINE TARTRATE
  14. MEMANTINE [Concomitant]
     Active Substance: MEMANTINE
  15. TYLENOL ARTHRITIS PAIN [Concomitant]
     Active Substance: ACETAMINOPHEN
  16. VITAMIN D3 [Concomitant]
     Active Substance: CHOLECALCIFEROL
  17. POLYSPORIN [Concomitant]
     Active Substance: BACITRACIN ZINC\POLYMYXIN B SULFATE
  18. VITAMIN B12 [Concomitant]
     Active Substance: CYANOCOBALAMIN
  19. VITAMINS [Concomitant]
     Active Substance: VITAMINS
  20. ASPIRIN [Concomitant]
     Active Substance: ASPIRIN
  21. VITAMIN C [Concomitant]
     Active Substance: ASCORBIC ACID
  22. BRIMONIDINE [Concomitant]
     Active Substance: BRIMONIDINE TARTRATE
  23. ZINC [Concomitant]
     Active Substance: ZINC
  24. PRILOSEC OTC [Concomitant]
     Active Substance: OMEPRAZOLE MAGNESIUM
  25. XALATAN [Concomitant]
     Active Substance: LATANOPROST
  26. CODEINE SULFATE [Concomitant]
     Active Substance: CODEINE SULFATE

REACTIONS (1)
  - Death [Fatal]

NARRATIVE: CASE EVENT DATE: 20241019
